FAERS Safety Report 9828251 (Version 1)
Quarter: 2013Q4

REPORT INFORMATION
  Report Type: Spontaneous
  Country: US (occurrence: None)
  Receive Date: 20131223
  Receipt Date: 20131223
  Transmission Date: 20140711
  Serious: Yes (Other)
  Sender: FDA-Public Use
  Company Number: 221317LEO

PATIENT
  Age: 64 Year
  Sex: Female

DRUGS (4)
  1. PICATO [Suspect]
     Indication: ACTINIC KERATOSIS
     Dosage: 1 IN 1 D TOPICAL
     Dates: start: 20130413, end: 20130415
  2. TOPROL XL (METOPROLOL SUCCINATE) (100 MILLIGRAM) (METOPROLOL SUCCINATE) [Concomitant]
  3. LISINOPRIL (LISINOPRIL) [Concomitant]
  4. HCTZ (HYDROCHLOROTHIAZIDE) [Concomitant]

REACTIONS (6)
  - Application site pain [None]
  - Application site exfoliation [None]
  - Application site scab [None]
  - Application site pain [None]
  - Application site swelling [None]
  - Application site pruritus [None]
